FAERS Safety Report 8787939 (Version 1)
Quarter: 2012Q4

REPORT INFORMATION
  Report Type: 
  Country: DE (occurrence: DE)
  Receive Date: 20120914
  Receipt Date: 20120914
  Transmission Date: 20130627
  Serious: Yes (Death, Hospitalization)
  Sender: FDA-Public Use
  Company Number: DE-ROCHE-1112523

PATIENT
  Age: 20 Year
  Sex: Male

DRUGS (1)
  1. ISOTRETINOIN [Suspect]
     Indication: ACNE
     Route: 048

REACTIONS (7)
  - Rhabdomyolysis [Fatal]
  - Ventricular fibrillation [Fatal]
  - Chapped lips [Unknown]
  - Dry skin [Unknown]
  - Decreased appetite [Unknown]
  - Fatigue [Unknown]
  - Myalgia [Unknown]
